FAERS Safety Report 9988459 (Version 1)
Quarter: 2014Q1

REPORT INFORMATION
  Report Type: Report from Study
  Country: US (occurrence: US)
  Receive Date: 20140310
  Receipt Date: 20140310
  Transmission Date: 20141002
  Serious: Yes (Other)
  Sender: FDA-Public Use
  Company Number: US-ROCHE-1356065

PATIENT
  Age: 32 Year
  Sex: 0

DRUGS (4)
  1. LUCENTIS [Suspect]
     Indication: DIABETIC RETINOPATHY
     Route: 050
  2. LUCENTIS [Suspect]
     Indication: MACULAR OEDEMA
  3. RAMIPRIL [Concomitant]
  4. SIMVASTATIN [Concomitant]

REACTIONS (4)
  - Retinal haemorrhage [Unknown]
  - Retinal vascular disorder [Unknown]
  - Vitreous floaters [Unknown]
  - Vitreous haemorrhage [Unknown]
